FAERS Safety Report 9214889 (Version 2)
Quarter: 2013Q2

REPORT INFORMATION
  Report Type: Report from Study
  Country: AU (occurrence: AU)
  Receive Date: 20130405
  Receipt Date: 20130626
  Transmission Date: 20140414
  Serious: Yes (Other)
  Sender: FDA-Public Use
  Company Number: AU-BRISTOL-MYERS SQUIBB COMPANY-18752659

PATIENT
  Age: 63 Year
  Sex: Male
  Weight: 100 kg

DRUGS (10)
  1. ORENCIA [Suspect]
     Indication: RHEUMATOID ARTHRITIS
     Dosage: 6TH SCRIPT- 6 INF PER SCRIPT,LAST INF:22-JUL-2012
     Route: 042
     Dates: start: 200901
  2. WARFARIN SODIUM [Suspect]
  3. PRADAXA [Suspect]
     Route: 048
     Dates: start: 2012
  4. METHOTREXATE [Concomitant]
     Route: 048
  5. FOLIC ACID [Concomitant]
     Dosage: EXCEPT MONDY
     Route: 048
  6. GLUCOSAMINE [Concomitant]
     Dosage: 1DF:10/11.
     Route: 048
  7. THYROXINE [Concomitant]
     Dosage: 100MCG+200MCG:ALTERNATIVE DAYS.
     Route: 048
  8. MICARDIS [Concomitant]
     Route: 048
  9. DIGOXIN [Concomitant]
     Route: 048
  10. CARVEDILOL [Concomitant]
     Route: 048

REACTIONS (3)
  - Maculopathy [Unknown]
  - Eye haemorrhage [Unknown]
  - Lower respiratory tract infection [Recovering/Resolving]
